FAERS Safety Report 8444676-0 (Version None)
Quarter: 2012Q2

REPORT INFORMATION
  Report Type: 
  Country: None (occurrence: None)
  Receive Date: 20120618
  Receipt Date: 20120612
  Transmission Date: 20120825
  Serious: Yes (Hospitalization)
  Sender: FDA-Public Use
  Company Number: DE-PFIZER INC-2012140792

PATIENT
  Sex: Male

DRUGS (1)
  1. ATORVASTATIN CALCIUM [Suspect]
     Indication: BLOOD CHOLESTEROL INCREASED
     Dosage: 20 MG, UNK
     Dates: start: 20110701

REACTIONS (4)
  - BACK PAIN [None]
  - DERMATITIS ALLERGIC [None]
  - DRUG ADMINISTRATION ERROR [None]
  - GUILLAIN-BARRE SYNDROME [None]
